FAERS Safety Report 4461792-9 (Version None)
Quarter: 2004Q3

REPORT INFORMATION
  Report Type: 
  Country: None (occurrence: None)
  Receive Date: 20040929
  Receipt Date: 20031017
  Transmission Date: 20050211
  Serious: No
  Sender: FDA-Public Use
  Company Number: US-GLAXOSMITHKLINE-A0430683A

PATIENT
  Age: 69 Year
  Sex: Male
  Weight: 75.9 kg

DRUGS (4)
  1. SEREVENT [Suspect]
     Dosage: 1PUFF PER DAY
     Route: 055
  2. COMBIVENT [Concomitant]
  3. SINGULAIR [Concomitant]
  4. ZOCOR [Concomitant]

REACTIONS (3)
  - CHEST DISCOMFORT [None]
  - PHARMACEUTICAL PRODUCT COMPLAINT [None]
  - WHEEZING [None]
